FAERS Safety Report 5376467-1 (Version None)
Quarter: 2007Q2

REPORT INFORMATION
  Report Type: 
  Country: None (occurrence: None)
  Receive Date: 20070628
  Receipt Date: 20070628
  Transmission Date: 20071010
  Serious: No
  Sender: FDA-Public Use
  Company Number: None

PATIENT
  Age: 47 Year
  Sex: Female

DRUGS (10)
  1. MODAFINIL [Suspect]
     Dates: start: 20060527, end: 20060811
  2. METHIMAZOLE [Suspect]
     Dates: start: 20060527, end: 20060811
  3. SKELAXIN [Concomitant]
  4. NEURONTIN [Concomitant]
  5. ORTHO-NOVUM [Concomitant]
  6. NAPROXEN [Concomitant]
  7. MAXALT [Concomitant]
  8. FLORICET [Concomitant]
  9. BEE POLLEN [Concomitant]
  10. VITAMIN B-12 [Concomitant]

REACTIONS (4)
  - EPSTEIN-BARR VIRUS INFECTION [None]
  - HEPATITIS ACUTE [None]
  - HEPATO-LENTICULAR DEGENERATION [None]
  - LIVER DISORDER [None]
